FAERS Safety Report 9086192 (Version 1)
Quarter: 2013Q1

REPORT INFORMATION
  Report Type: Report from Study
  Country: US (occurrence: US)
  Receive Date: 20130130
  Receipt Date: 20130130
  Transmission Date: 20140127
  Serious: No
  Sender: FDA-Public Use
  Company Number: US-ABBOTT-12P-163-0986101-00

PATIENT
  Age: 47 Year
  Sex: Female

DRUGS (11)
  1. HUMIRA [Suspect]
     Indication: CROHN^S DISEASE
     Dates: start: 20120921
  2. LEVEMIR INSULIN [Concomitant]
     Indication: DIABETES MELLITUS
     Dosage: DAILY
  3. JANUVIA [Concomitant]
     Indication: DIABETES MELLITUS
     Dosage: DAILY
  4. METOPROLOL [Concomitant]
     Indication: BLOOD PRESSURE
  5. METOPROLOL [Concomitant]
     Indication: CARDIAC FAILURE CONGESTIVE
  6. DIOVAN [Concomitant]
     Indication: HYPERTENSION
  7. DIOVAN [Concomitant]
     Indication: CARDIAC FAILURE CONGESTIVE
  8. NASONEX [Concomitant]
     Indication: HYPERSENSITIVITY
  9. EPIPEN [Concomitant]
     Indication: HYPERSENSITIVITY
  10. BENTYL [Concomitant]
     Indication: CROHN^S DISEASE
  11. LYRICA [Concomitant]
     Indication: PRODUCT USED FOR UNKNOWN INDICATION

REACTIONS (1)
  - Injection site pain [Recovered/Resolved]
